FAERS Safety Report 7373996-6 (Version None)
Quarter: 2011Q1

REPORT INFORMATION
  Report Type: 
  Country: None (occurrence: None)
  Receive Date: 20110325
  Receipt Date: 20110322
  Transmission Date: 20110831
  Serious: No
  Sender: FDA-Public Use
  Company Number: US-PFIZER INC-2011064204

PATIENT
  Sex: Female
  Weight: 63.492 kg

DRUGS (4)
  1. LYRICA [Suspect]
     Indication: HERPES ZOSTER
     Dosage: 50 MG, UNK
     Route: 048
     Dates: start: 20110301
  2. SYNTHROID [Concomitant]
     Dosage: 75 UG, UNK
  3. TOPROL-XL [Concomitant]
     Indication: HYPERTENSION
     Dosage: 100 MG, UNK
  4. DETROL [Concomitant]
     Dosage: UNK

REACTIONS (3)
  - FEELING ABNORMAL [None]
  - SENSATION OF HEAVINESS [None]
  - PAIN [None]
